FAERS Safety Report 7114469-5 (Version None)
Quarter: 2010Q4

REPORT INFORMATION
  Report Type: 
  Country: None (occurrence: None)
  Receive Date: 20101119
  Receipt Date: 20101115
  Transmission Date: 20110411
  Serious: Yes (Hospitalization)
  Sender: FDA-Public Use
  Company Number: US-ABBOTT-10P-163-0685575-00

PATIENT
  Sex: Male
  Weight: 83.082 kg

DRUGS (10)
  1. TRILIPIX [Suspect]
     Indication: BLOOD TRIGLYCERIDES INCREASED
     Dates: start: 20100501
  2. PLAVIX [Suspect]
     Indication: AORTIC EMBOLUS
     Dates: start: 20100701
  3. TRAMADOL HCL [Concomitant]
     Indication: PAIN
  4. LOPRESSOR [Concomitant]
     Indication: HYPERTENSION
  5. HYDROCHLOROTHIAZIDE [Concomitant]
     Indication: HYPERTENSION
  6. ALLOPURINOL [Concomitant]
     Indication: OEDEMA PERIPHERAL
  7. CLARITIN [Concomitant]
     Indication: HYPERSENSITIVITY
  8. FLOMAX [Concomitant]
     Indication: MICTURITION DISORDER
  9. ZOCOR [Concomitant]
     Indication: BLOOD CHOLESTEROL INCREASED
  10. AREDIA [Concomitant]
     Indication: RENAL CANCER

REACTIONS (9)
  - BLOOD CREATININE INCREASED [None]
  - DIARRHOEA [None]
  - DIZZINESS [None]
  - DUODENAL ULCER HAEMORRHAGE [None]
  - DYSPNOEA [None]
  - GLOMERULAR FILTRATION RATE DECREASED [None]
  - HAEMATOCHEZIA [None]
  - RHINORRHOEA [None]
  - STAPHYLOCOCCAL INFECTION [None]
